FAERS Safety Report 10967612 (Version 1)
Quarter: 2015Q1

REPORT INFORMATION
  Report Type: Other
  Country: FR (occurrence: FR)
  Receive Date: 20150330
  Receipt Date: 20150330
  Transmission Date: 20150721
  Serious: Yes (Other)
  Sender: FDA-Public Use
  Company Number: FR-MYLANLABS-2015M1008513

PATIENT

DRUGS (1)
  1. M?THOTREXATE MYLAN 50 MG / 2ML SOLUTION INJECTABLE [Suspect]
     Active Substance: METHOTREXATE
     Indication: OROPHARYNGEAL CANCER
     Dosage: UNK
     Route: 042
     Dates: start: 20150211, end: 20150211

REACTIONS (3)
  - Stomatitis [Not Recovered/Not Resolved]
  - Aphthous stomatitis [Not Recovered/Not Resolved]
  - Weight decreased [Unknown]

NARRATIVE: CASE EVENT DATE: 20150211
